FAERS Safety Report 9264052 (Version 3)
Quarter: 2013Q2

REPORT INFORMATION
  Report Type: Spontaneous
  Country: DK (occurrence: FR)
  Receive Date: 20130430
  Receipt Date: 20130524
  Transmission Date: 20140414
  Serious: Yes (Life-Threatening, Hospitalization)
  Sender: FDA-Public Use
  Company Number: FR-FRI-1000044780

PATIENT
  Age: 71 Year
  Sex: Male

DRUGS (6)
  1. NEBIVOLOL [Suspect]
     Indication: HYPERTENSION
     Dosage: 1.25 MG
     Route: 048
     Dates: start: 201301, end: 201302
  2. SEROPLEX [Concomitant]
     Dosage: 10 MG
     Route: 048
  3. CRESTOR [Concomitant]
     Dosage: 5 MG
     Route: 048
  4. INEXIUM [Concomitant]
     Dosage: 40 MG
     Route: 048
  5. COLCHICINE [Concomitant]
     Dosage: 1 MG
  6. LOVENOX [Concomitant]
     Dosage: 4000 IU ANTI-XA/0.4 ML
     Route: 058

REACTIONS (6)
  - Orthostatic hypotension [Recovered/Resolved]
  - Fall [Recovered/Resolved]
  - Lung disorder [Unknown]
  - Hepatocellular injury [Unknown]
  - Cholestasis [Unknown]
  - Cholecystitis acute [Unknown]
